FAERS Safety Report 8549273-4 (Version None)
Quarter: 2012Q3

REPORT INFORMATION
  Report Type: 
  Country: None (occurrence: None)
  Receive Date: 20120730
  Receipt Date: 20120719
  Transmission Date: 20120928
  Serious: No
  Sender: FDA-Public Use
  Company Number: US-B.I. PHARMACEUTICALS,INC./RIDGEFIELD-2012-BP-16161BP

PATIENT
  Age: 86 Year
  Sex: Female
  Weight: 68 kg

DRUGS (2)
  1. FLOVENT [Concomitant]
     Indication: DRUG THERAPY ENHANCEMENT
     Dosage: 440 MCG
     Route: 055
     Dates: start: 20070101
  2. COMBIVENT [Suspect]
     Indication: DYSPNOEA
     Route: 055
     Dates: start: 20070101

REACTIONS (2)
  - OROPHARYNGEAL PAIN [None]
  - THROAT IRRITATION [None]
